FAERS Safety Report 6838369-0 (Version None)
Quarter: 2010Q3

REPORT INFORMATION
  Report Type: 
  Country: None (occurrence: None)
  Receive Date: 20100713
  Receipt Date: 20070607
  Transmission Date: 20110219
  Serious: No
  Sender: FDA-Public Use
  Company Number: US-PFIZER INC-2007047463

PATIENT
  Sex: Female
  Weight: 43.5 kg

DRUGS (5)
  1. CHANTIX [Suspect]
     Indication: SMOKING CESSATION THERAPY
     Dates: start: 20070524
  2. TOPROL-XL [Concomitant]
  3. DIGOXIN [Concomitant]
  4. ADVAIR DISKUS 100/50 [Concomitant]
  5. PREMARIN [Concomitant]

REACTIONS (3)
  - ABDOMINAL PAIN UPPER [None]
  - ABNORMAL DREAMS [None]
  - HEAD DISCOMFORT [None]
